FAERS Safety Report 5773523-0 (Version None)
Quarter: 2008Q2

REPORT INFORMATION
  Report Type: 
  Country: None (occurrence: None)
  Receive Date: 20080616
  Receipt Date: 20080606
  Transmission Date: 20081010
  Serious: Yes (Hospitalization)
  Sender: FDA-Public Use
  Company Number: US-ROCHE-569096

PATIENT
  Sex: Female
  Weight: 47.2 kg

DRUGS (3)
  1. BONIVA [Suspect]
     Indication: OSTEOPOROSIS
     Route: 048
     Dates: start: 20070101
  2. CARVEDILOL [Suspect]
     Dosage: DOSE REPORTED AS: 25 MG I/2 TABLET TWICE DAILY
     Route: 065
     Dates: start: 20060101
  3. DIOVAN [Concomitant]

REACTIONS (3)
  - AORTIC ANEURYSM [None]
  - RHINITIS [None]
  - VISION BLURRED [None]
